FAERS Safety Report 13449556 (Version 1)
Quarter: 2017Q2

REPORT INFORMATION
  Report Type: Spontaneous
  Country: US (occurrence: US)
  Receive Date: 20170417
  Receipt Date: 20170417
  Transmission Date: 20170830
  Serious: No
  Sender: FDA-Public Use
  Company Number: GXBR2016US003040

PATIENT
  Age: 74 Year
  Sex: Female
  Weight: 76.19 kg

DRUGS (3)
  1. METOPROLOL. [Concomitant]
     Active Substance: METOPROLOL
     Dosage: 50 MG, UNK
  2. LISINOPRIL. [Concomitant]
     Active Substance: LISINOPRIL
     Indication: HYPERTENSION
     Dosage: UNK DF, UNK
  3. CEFTRIAXONE. [Suspect]
     Active Substance: CEFTRIAXONE
     Indication: LYME DISEASE
     Dosage: 1 G, UNK
     Route: 065
     Dates: start: 201508, end: 201508

REACTIONS (3)
  - Injection site pain [Unknown]
  - Crying [Unknown]
  - Injection site reaction [Unknown]

NARRATIVE: CASE EVENT DATE: 201508
